FAERS Safety Report 6572845-3 (Version None)
Quarter: 2010Q1

REPORT INFORMATION
  Report Type: 
  Country: None (occurrence: None)
  Receive Date: 20100205
  Receipt Date: 20100125
  Transmission Date: 20100710
  Serious: Yes (Hospitalization, Other)
  Sender: FDA-Public Use
  Company Number: IE-MEDIMMUNE-MEDI-0009460

PATIENT
  Sex: Female
  Weight: 5.5 kg

DRUGS (2)
  1. SYNAGIS [Suspect]
     Indication: RESPIRATORY SYNCYTIAL VIRUS INFECTION
     Route: 030
     Dates: start: 20091007, end: 20091007
  2. SYNAGIS [Suspect]
     Route: 030
     Dates: start: 20091104, end: 20091104

REACTIONS (4)
  - DIARRHOEA [None]
  - NASOPHARYNGITIS [None]
  - RESPIRATORY RATE INCREASED [None]
  - WHEEZING [None]
